FAERS Safety Report 24898876 (Version 5)
Quarter: 2025Q2

REPORT INFORMATION
  Report Type: Spontaneous
  Country: GB (occurrence: GB)
  Receive Date: 20250129
  Receipt Date: 20250407
  Transmission Date: 20250716
  Serious: Yes (Other)
  Sender: DR REDDYS
  Company Number: None

PATIENT
  Age: 56 Year
  Sex: Female

DRUGS (6)
  1. CLOPIDOGREL [Suspect]
     Active Substance: CLOPIDOGREL BISULFATE
     Indication: Product used for unknown indication
  2. CLOPIDOGREL [Suspect]
     Active Substance: CLOPIDOGREL BISULFATE
  3. ADALIMUMAB [Suspect]
     Active Substance: ADALIMUMAB
     Indication: Rheumatoid arthritis
     Dosage: 40 MILLIGRAM(EVERY TWO WEEKS)
     Route: 058
     Dates: start: 20230911
  4. HYRIMOZ [Suspect]
     Active Substance: ADALIMUMAB-ADAZ
     Indication: Rheumatoid arthritis
     Dosage: 40 MILLIGRAM HYRIMOZ 40 MG/0.8 ML SOLUTION FOR INJECTION IN PRE-FILLED PEN BIWEEKLY (Q2W)(EOW)
     Route: 058
     Dates: start: 20230911
  5. HYRIMOZ [Suspect]
     Active Substance: ADALIMUMAB-ADAZ
     Dosage: 40.000DF TIW
     Route: 058
     Dates: start: 20230911
  6. HYRIMOZ [Suspect]
     Active Substance: ADALIMUMAB-ADAZ
     Dosage: 40 MILLIGRAM(BIWEEKLY)?40 DOSAGE FORM (40.000DF TIW )
     Route: 058
     Dates: start: 20230911

REACTIONS (9)
  - Fatigue [Unknown]
  - Abdominal pain [Unknown]
  - Decreased appetite [Recovering/Resolving]
  - Constipation [Unknown]
  - Contusion [Unknown]
  - Hypoglycaemia [Unknown]
  - Gastrooesophageal reflux disease [Not Recovered/Not Resolved]
  - Depression [Recovering/Resolving]
  - Drug ineffective [Unknown]
